FAERS Safety Report 17704349 (Version 1)
Quarter: 2020Q2

REPORT INFORMATION
  Report Type: Spontaneous
  Country: FR (occurrence: FR)
  Receive Date: 20200424
  Receipt Date: 20200424
  Transmission Date: 20200714
  Serious: Yes (Death)
  Sender: FDA-Public Use
  Company Number: FR-ROCHE-2547663

PATIENT
  Age: 23 Year
  Sex: Male
  Weight: 44 kg

DRUGS (2)
  1. PEMBROLIZUMAB. [Concomitant]
     Active Substance: PEMBROLIZUMAB
  2. ROACTEMRA [Suspect]
     Active Substance: TOCILIZUMAB
     Indication: PARANEOPLASTIC SYNDROME
     Dosage: ON D1, D15, D28 AND THEN EVERY 28 DAYS FOR A TOTAL DURATION OF 3 MONTHS
     Route: 042

REACTIONS (4)
  - Product use in unapproved indication [Unknown]
  - Death [Fatal]
  - Off label use [Unknown]
  - No adverse event [Unknown]

NARRATIVE: CASE EVENT DATE: 20200223
